FAERS Safety Report 5201954-6 (Version None)
Quarter: 2007Q1

REPORT INFORMATION
  Report Type: 
  Country: None (occurrence: None)
  Receive Date: 20070104
  Receipt Date: 20070104
  Transmission Date: 20070707
  Serious: No
  Sender: FDA-Public Use
  Company Number: None

PATIENT
  Age: 66 Year
  Sex: Female
  Weight: 60.3284 kg

DRUGS (2)
  1. ONDANSETRON [Suspect]
     Indication: NAUSEA
     Dosage: 4MG  ONE TIME  IV BOLUS
     Route: 040
     Dates: start: 20061007, end: 20061007
  2. ONDANSETRON [Suspect]
     Indication: VOMITING
     Dosage: 4MG  ONE TIME  IV BOLUS
     Route: 040
     Dates: start: 20061007, end: 20061007

REACTIONS (3)
  - ANXIETY [None]
  - CHEST DISCOMFORT [None]
  - HYPOAESTHESIA [None]
